FAERS Safety Report 6996580-2 (Version None)
Quarter: 2010Q3

REPORT INFORMATION
  Report Type: 
  Country: None (occurrence: None)
  Receive Date: 20100918
  Receipt Date: 20090722
  Transmission Date: 20110219
  Serious: No
  Sender: FDA-Public Use
  Company Number: US-WYE-H09548509

PATIENT
  Age: 33 Year
  Sex: Female

DRUGS (1)
  1. EFFEXOR XR [Suspect]
     Indication: DEPRESSION
     Dosage: ^VARIOUS DOSES^ AND WHEN SHE DISCONTINUED SHE TAPERED THE DRUG AND THEN STOPPED
     Route: 048
     Dates: start: 20060101, end: 20080601

REACTIONS (3)
  - DEPRESSION [None]
  - DRUG WITHDRAWAL SYNDROME [None]
  - EMOTIONAL DISORDER [None]
